FAERS Safety Report 12929994 (Version 1)
Quarter: 2016Q4

REPORT INFORMATION
  Report Type: Spontaneous
  Country: NL (occurrence: NL)
  Receive Date: 20161110
  Receipt Date: 20161110
  Transmission Date: 20170207
  Serious: Yes (Hospitalization)
  Sender: FDA-Public Use
  Company Number: NL-CELLTRION HEALTHCARE HUNGARY KFT-2016NL011807

PATIENT

DRUGS (3)
  1. 5-ASA [Concomitant]
     Active Substance: MESALAMINE
  2. ENEMA (SODIUM PHOSPHATE, DIBASIC\SODIUM PHOSPHATE, MONOBASIC) [Concomitant]
     Active Substance: SODIUM PHOSPHATE, DIBASIC\SODIUM PHOSPHATE, MONOBASIC
  3. INFLIXIMAB [Suspect]
     Active Substance: INFLIXIMAB
     Indication: COLITIS ULCERATIVE
     Route: 065

REACTIONS (8)
  - Large intestine perforation [Unknown]
  - Diarrhoea [Unknown]
  - Vomiting [Unknown]
  - Clostridium difficile colitis [Unknown]
  - Abdominal pain [Unknown]
  - Nausea [Unknown]
  - Pyrexia [Unknown]
  - Enterococcal infection [Unknown]
